FAERS Safety Report 22243795 (Version 1)
Quarter: 2023Q2

REPORT INFORMATION
  Report Type: Spontaneous
  Country: ES (occurrence: ES)
  Receive Date: 20230424
  Receipt Date: 20230424
  Transmission Date: 20230721
  Serious: Yes (Hospitalization)
  Sender: FDA-Public Use
  Company Number: ES-JNJFOC-20230366383

PATIENT
  Age: 69 Year
  Sex: Female

DRUGS (2)
  1. SPRAVATO [Suspect]
     Active Substance: ESKETAMINE
     Indication: Product used for unknown indication
     Dosage: 1 DEVICE
     Dates: start: 20230317
  2. SPRAVATO [Suspect]
     Active Substance: ESKETAMINE
     Dosage: 2 DEVICES
     Dates: start: 20230321

REACTIONS (4)
  - Hypokinesia [Recovered/Resolved]
  - Mouth swelling [Recovered/Resolved]
  - Lip swelling [Recovered/Resolved]
  - Pharyngeal swelling [Recovered/Resolved]

NARRATIVE: CASE EVENT DATE: 20230321
